FAERS Safety Report 9259244 (Version 2)
Quarter: 2013Q2

REPORT INFORMATION
  Report Type: Report from Study
  Country: US (occurrence: US)
  Receive Date: 20130426
  Receipt Date: 20130430
  Transmission Date: 20140414
  Serious: Yes (Hospitalization, Other)
  Sender: FDA-Public Use
  Company Number: US-ABBOTT-13P-163-1078021-00

PATIENT
  Age: 52 Year
  Sex: Female

DRUGS (11)
  1. HUMIRA [Suspect]
     Indication: CROHN^S DISEASE
     Dates: start: 20130225
  2. LOVASTATIN [Concomitant]
     Indication: BLOOD CHOLESTEROL INCREASED
     Dosage: EVERY NIGHT
  3. TRAZODONE [Concomitant]
     Indication: INSOMNIA
     Dosage: 100MG DAILY AT 4PM
  4. REQUIP [Concomitant]
     Indication: RESTLESS LEGS SYNDROME
     Dosage: 2MG DAILY
  5. EFFEXOR [Concomitant]
     Indication: DEPRESSION
  6. KLONOPIN [Concomitant]
     Indication: ANXIETY
  7. PROTONIX [Concomitant]
     Indication: GASTROOESOPHAGEAL REFLUX DISEASE
     Dosage: 40MG DAILY
  8. ATROVENT [Concomitant]
     Indication: ASTHMA
  9. SINGULAIR [Concomitant]
     Indication: SEASONAL ALLERGY
     Dosage: DAILY
  10. QBAR INHALER [Concomitant]
     Indication: ASTHMA
  11. DILAUDID [Concomitant]
     Indication: NEURALGIA

REACTIONS (8)
  - Fatigue [Recovering/Resolving]
  - Pneumonia [Recovering/Resolving]
  - Neuralgia [Recovering/Resolving]
  - Sinusitis [Recovering/Resolving]
  - Rhinorrhoea [Recovering/Resolving]
  - Nausea [Recovering/Resolving]
  - Vomiting [Recovered/Resolved]
  - Diarrhoea [Recovered/Resolved]
